FAERS Safety Report 19879401 (Version 1)
Quarter: 2021Q3

REPORT INFORMATION
  Report Type: Spontaneous
  Country: US (occurrence: US)
  Receive Date: 20210923
  Receipt Date: 20210923
  Transmission Date: 20211014
  Serious: No
  Sender: FDA-Public Use
  Company Number: None

PATIENT
  Sex: Female

DRUGS (2)
  1. HUMIRA [Suspect]
     Active Substance: ADALIMUMAB
     Indication: CROHN^S DISEASE
     Route: 058
     Dates: start: 202105
  2. HUMIRA [Suspect]
     Active Substance: ADALIMUMAB
     Indication: CROHN^S DISEASE
     Dosage: OTHER DOSE:2 ON DAY 0, 1DA14;OTHER FREQUENCY:2 ON DAY 0, 1ON DAY;?
     Route: 058
     Dates: start: 202105

REACTIONS (2)
  - Erythema [None]
  - Skin exfoliation [None]
